FAERS Safety Report 11587729 (Version 1)
Quarter: 2015Q4

REPORT INFORMATION
  Report Type: Spontaneous
  Country: US (occurrence: US)
  Receive Date: 20151001
  Receipt Date: 20151001
  Transmission Date: 20160304
  Serious: Yes (Hospitalization, Other)
  Sender: FDA-Public Use
  Company Number: US-GLAXOSMITHKLINE-US2015GSK139598

PATIENT
  Age: 55 Year
  Sex: Male
  Weight: 92.9 kg

DRUGS (1)
  1. VOTRIENT [Suspect]
     Active Substance: PAZOPANIB HYDROCHLORIDE
     Indication: PRODUCT USED FOR UNKNOWN INDICATION
     Dosage: 800 MG, QD
     Route: 048
     Dates: start: 20140902, end: 20150303

REACTIONS (6)
  - Nausea [Unknown]
  - Vomiting [Unknown]
  - Tumour excision [Unknown]
  - Neoplasm [Unknown]
  - Decreased appetite [Unknown]
  - Radiotherapy [Unknown]

NARRATIVE: CASE EVENT DATE: 20141010
